FAERS Safety Report 11128149 (Version 15)
Quarter: 2018Q2

REPORT INFORMATION
  Report Type: Report from Study
  Country: AT (occurrence: AT)
  Receive Date: 20150521
  Receipt Date: 20180622
  Transmission Date: 20180711
  Serious: Yes (Hospitalization, Other)
  Sender: FDA-Public Use
  Company Number: AT-INCYTE CORPORATION-2015IN002167

PATIENT

DRUGS (9)
  1. PURINOL//ALLOPURINOL [Concomitant]
     Indication: GOUT
     Dosage: 300 MG, QD
     Route: 065
     Dates: start: 2005
  2. INDERAL [Concomitant]
     Active Substance: PROPRANOLOL HYDROCHLORIDE
     Indication: PRODUCT USED FOR UNKNOWN INDICATION
     Dosage: 40 MG 1/2-0-0
     Route: 065
     Dates: start: 2003
  3. PREDNISOLON [Concomitant]
     Active Substance: PREDNISOLONE
     Dosage: 25 MG, TID
     Route: 065
     Dates: start: 20150512, end: 20150710
  4. PREDNISOLON [Concomitant]
     Active Substance: PREDNISOLONE
     Dosage: 1 MG OF PREDNISOLONE PER KILOGRAM OF BODYWEIGHT
     Route: 065
     Dates: start: 20130829, end: 20130930
  5. JAKAVI [Suspect]
     Active Substance: RUXOLITINIB
     Indication: MYELOFIBROSIS
     Dosage: 10 MG, BID
     Route: 048
     Dates: start: 20130830
  6. VOLFEN//DICLOFENAC DIETHYLAMINE [Concomitant]
     Indication: PYODERMA GANGRENOSUM
     Dosage: UNK, BID
     Route: 065
     Dates: start: 20150510, end: 20150515
  7. THROMBO ASS [Concomitant]
     Active Substance: ASPIRIN
     Indication: PRODUCT USED FOR UNKNOWN INDICATION
     Dosage: UNK
     Route: 065
     Dates: start: 1994, end: 201408
  8. PREDNISOLON [Concomitant]
     Active Substance: PREDNISOLONE
     Indication: PYODERMA GANGRENOSUM
     Dosage: UNK
     Route: 065
     Dates: start: 201307, end: 201308
  9. FOSTER [Concomitant]
     Active Substance: BECLOMETHASONE\FORMOTEROL
     Indication: CHRONIC OBSTRUCTIVE PULMONARY DISEASE
     Dosage: UNK
     Route: 065
     Dates: start: 20150925

REACTIONS (10)
  - Bronchitis bacterial [Recovered/Resolved]
  - Glomerular filtration rate decreased [Unknown]
  - Haemoglobin decreased [Unknown]
  - Protein urine present [Unknown]
  - Pyoderma gangrenosum [Recovered/Resolved]
  - Staphylococcal infection [Unknown]
  - Erysipelas [Recovered/Resolved]
  - Abscess [Recovered/Resolved]
  - Pyoderma gangrenosum [Recovered/Resolved]
  - Chronic obstructive pulmonary disease [Not Recovered/Not Resolved]

NARRATIVE: CASE EVENT DATE: 20150504
